FAERS Safety Report 19122043 (Version 1)
Quarter: 2021Q2

REPORT INFORMATION
  Report Type: Spontaneous
  Country: US (occurrence: US)
  Receive Date: 20210412
  Receipt Date: 20210412
  Transmission Date: 20210717
  Serious: Yes (Other)
  Sender: FDA-Public Use
  Company Number: US-GLAXOSMITHKLINE-US2021GSK079511

PATIENT
  Sex: Male

DRUGS (4)
  1. ZANTAC [Suspect]
     Active Substance: RANITIDINE HYDROCHLORIDE
     Dosage: 150 MG, 5?6 TIMES PER WEEK
     Route: 065
     Dates: start: 199507, end: 201910
  2. ZANTAC [Suspect]
     Active Substance: RANITIDINE HYDROCHLORIDE
     Dosage: 75 MG, 5?6 TIMES PER WEEK
     Route: 065
     Dates: start: 199507, end: 201910
  3. ZANTAC [Suspect]
     Active Substance: RANITIDINE HYDROCHLORIDE
     Indication: DYSPEPSIA
     Dosage: 75 MG, 5?6 TIMES PER WEEK
     Route: 065
     Dates: start: 199507, end: 201910
  4. ZANTAC [Suspect]
     Active Substance: RANITIDINE HYDROCHLORIDE
     Indication: DYSPEPSIA
     Dosage: 75 MG, 5?6 TIMES PER WEEK
     Route: 065
     Dates: start: 199507, end: 201910

REACTIONS (2)
  - Prostate cancer [Unknown]
  - Testis cancer [Unknown]
